FAERS Safety Report 21792436 (Version 1)
Quarter: 2022Q4

REPORT INFORMATION
  Report Type: Report from Study
  Country: CA (occurrence: CA)
  Receive Date: 20221229
  Receipt Date: 20221229
  Transmission Date: 20230113
  Serious: Yes (Other)
  Sender: FDA-Public Use
  Company Number: CA-ABBVIE-4249596

PATIENT
  Age: 41 Year
  Sex: Female

DRUGS (1)
  1. SKYRIZI [Suspect]
     Active Substance: RISANKIZUMAB-RZAA
     Indication: Psoriasis
     Route: 058
     Dates: start: 20210422

REACTIONS (6)
  - Osteomyelitis [Unknown]
  - Jaw operation [Unknown]
  - Tooth extraction [Unknown]
  - Psoriasis [Unknown]
  - Skin haemorrhage [Unknown]
  - Loose tooth [Unknown]

NARRATIVE: CASE EVENT DATE: 20220701
